FAERS Safety Report 8511146-0 (Version None)
Quarter: 2012Q3

REPORT INFORMATION
  Report Type: 
  Country: None (occurrence: None)
  Receive Date: 20120716
  Receipt Date: 20120709
  Transmission Date: 20120928
  Serious: Yes (Hospitalization)
  Sender: FDA-Public Use
  Company Number: US-BAYER-2012-062160

PATIENT
  Age: 14 Year
  Sex: Female
  Weight: 44.444 kg

DRUGS (9)
  1. QVAR 40 [Concomitant]
     Indication: ASTHMA
     Dosage: UNK UNK, PRN
     Route: 055
  2. DROSPIRENONE AND ETHINYL ESTRADIOL [Suspect]
     Indication: PREMENSTRUAL SYNDROME
  3. DROSPIRENONE AND ETHINYL ESTRADIOL [Suspect]
     Indication: ACNE
     Dosage: UNK
     Dates: start: 20090813, end: 20091001
  4. CENTRALLY ACTING SYMPATHOMIMETICS [Concomitant]
     Indication: ATTENTION DEFICIT/HYPERACTIVITY DISORDER
  5. SINGULAIR [Concomitant]
     Indication: ASTHMA
  6. RANITIDINE [Concomitant]
     Dosage: 150 MG, PRN
  7. ALBUTEROL [Concomitant]
     Indication: WHEEZING
     Dosage: UNK UNK, PRN
     Route: 055
  8. NASONEX [Concomitant]
     Indication: MULTIPLE ALLERGIES
     Dosage: UNK UNK, PRN
     Route: 045
  9. NORETHINDRONE [Concomitant]
     Indication: AMENORRHOEA
     Dosage: 5 MG, DAILY

REACTIONS (7)
  - DEEP VEIN THROMBOSIS [None]
  - FATIGUE [None]
  - ARTHRALGIA [None]
  - JOINT STIFFNESS [None]
  - ANXIETY [None]
  - LOCAL SWELLING [None]
  - MENTAL DISORDER [None]
